FAERS Safety Report 7642892-9 (Version None)
Quarter: 2011Q3

REPORT INFORMATION
  Report Type: 
  Country: None (occurrence: None)
  Receive Date: 20110728
  Receipt Date: 20110718
  Transmission Date: 20111222
  Serious: Yes (Other)
  Sender: FDA-Public Use
  Company Number: PHHY2011DE64476

PATIENT
  Age: 72 Year
  Sex: Female

DRUGS (2)
  1. CORTISONE ACETATE [Concomitant]
  2. AREDIA [Suspect]
     Indication: MULTIPLE MYELOMA
     Dosage: UNK
     Route: 042
     Dates: start: 19990201, end: 20050224

REACTIONS (1)
  - OSTEONECROSIS OF JAW [None]
